FAERS Safety Report 20047190 (Version 6)
Quarter: 2022Q4

REPORT INFORMATION
  Report Type: Other
  Country: IL (occurrence: None)
  Receive Date: 20211109
  Receipt Date: 20221223
  Transmission Date: 20230113
  Serious: Yes (Hospitalization, Other)
  Sender: FDA-Public Use
  Company Number: IL-ROCHE-2949320

PATIENT
  Age: 44 Year
  Sex: Female

DRUGS (1)
  1. PRALSETINIB [Suspect]
     Active Substance: PRALSETINIB
     Indication: Thyroid cancer
     Dosage: 400MG/DAY
     Route: 048
     Dates: start: 20211017

REACTIONS (11)
  - Confusional state [Recovering/Resolving]
  - Pancreatitis [Unknown]
  - Limbic encephalitis [Unknown]
  - Weight decreased [Unknown]
  - Malaise [Unknown]
  - Anaemia [Recovering/Resolving]
  - Fatigue [Recovering/Resolving]
  - Proteinuria [Recovering/Resolving]
  - Psychomotor skills impaired [Unknown]
  - Anterograde amnesia [Unknown]
  - Memory impairment [Unknown]

NARRATIVE: CASE EVENT DATE: 20211031
